FAERS Safety Report 13278176 (Version 1)
Quarter: 2017Q1

REPORT INFORMATION
  Report Type: Spontaneous
  Country: US (occurrence: US)
  Receive Date: 20170228
  Receipt Date: 20170228
  Transmission Date: 20170428
  Serious: No
  Sender: FDA-Public Use
  Company Number: US-MYLANLABS-2016M1022888

PATIENT
  Sex: Female

DRUGS (1)
  1. TRETINOIN MYLAN [Suspect]
     Active Substance: TRETINOIN
     Indication: ACNE
     Dosage: 1 DF, QD
     Route: 061
     Dates: start: 2016

REACTIONS (2)
  - Xerosis [Recovering/Resolving]
  - Skin exfoliation [Recovering/Resolving]

NARRATIVE: CASE EVENT DATE: 2016
